FAERS Safety Report 13457584 (Version 1)
Quarter: 2017Q2

REPORT INFORMATION
  Report Type: Spontaneous
  Country: US (occurrence: US)
  Receive Date: 20170419
  Receipt Date: 20170419
  Transmission Date: 20170830
  Serious: No
  Sender: FDA-Public Use
  Company Number: US-ELI_LILLY_AND_COMPANY-US201704006184

PATIENT

DRUGS (3)
  1. BASAGLAR [Suspect]
     Active Substance: INSULIN GLARGINE
     Dosage: 33 IU, UNKNOWN
     Route: 058
     Dates: start: 201702
  2. METFORMIN [Concomitant]
     Active Substance: METFORMIN HYDROCHLORIDE
     Indication: TYPE 2 DIABETES MELLITUS
  3. BASAGLAR [Suspect]
     Active Substance: INSULIN GLARGINE
     Indication: TYPE 2 DIABETES MELLITUS
     Dosage: 33 IU, UNKNOWN
     Route: 058
     Dates: start: 201702

REACTIONS (3)
  - Injection site haemorrhage [Recovered/Resolved]
  - Injection site pain [Unknown]
  - Headache [Not Recovered/Not Resolved]
